FAERS Safety Report 15692925 (Version 1)
Quarter: 2018Q4

REPORT INFORMATION
  Report Type: Spontaneous
  Country: US (occurrence: US)
  Receive Date: 20181206
  Receipt Date: 20181206
  Transmission Date: 20190205
  Serious: No
  Sender: FDA-Public Use
  Company Number: US-B.I. PHARMACEUTICALS,INC./RIDGEFIELD-2018-BI-058507

PATIENT
  Sex: Male

DRUGS (1)
  1. COMBIVENT [Suspect]
     Active Substance: ALBUTEROL SULFATE\IPRATROPIUM BROMIDE
     Indication: LUNG LOBECTOMY
     Dosage: STRENGTH: 20 MCG/200 MCG; FORM: INHALATION SPRAY
     Route: 065

REACTIONS (2)
  - Off label use [Unknown]
  - Product quality issue [Unknown]
